FAERS Safety Report 6737067-1 (Version None)
Quarter: 2010Q2

REPORT INFORMATION
  Report Type: 
  Country: None (occurrence: None)
  Receive Date: 20100524
  Receipt Date: 20100514
  Transmission Date: 20101027
  Serious: Yes (Hospitalization)
  Sender: FDA-Public Use
  Company Number: US-BIOGENIDEC-2010BI008329

PATIENT
  Age: 27 Year
  Sex: Female
  Weight: 120 kg

DRUGS (6)
  1. TYSABRI [Suspect]
     Indication: MULTIPLE SCLEROSIS
     Route: 042
     Dates: start: 20081223, end: 20091117
  2. TYSABRI [Suspect]
     Route: 042
     Dates: start: 20100511
  3. VITAMIN B-12 [Concomitant]
  4. ATIVAN [Concomitant]
  5. METOPROLOL SUCCINATE [Concomitant]
  6. CHANTIX [Concomitant]

REACTIONS (2)
  - ATRIAL FIBRILLATION [None]
  - MULTIPLE SCLEROSIS RELAPSE [None]
